FAERS Safety Report 13737794 (Version 1)
Quarter: 2017Q3

REPORT INFORMATION
  Report Type: Report from Study
  Country: US (occurrence: US)
  Receive Date: 20170710
  Receipt Date: 20170710
  Transmission Date: 20171127
  Serious: No
  Sender: FDA-Public Use
  Company Number: US-SAOL THERAPEUTICS-2016SAO00872

PATIENT
  Sex: Male

DRUGS (16)
  1. BUPIVACAINE. [Suspect]
     Active Substance: BUPIVACAINE
     Dosage: 27.403 MG, \DAY
     Route: 037
     Dates: start: 20151207
  2. CLONIDINE. [Suspect]
     Active Substance: CLONIDINE
     Dosage: 97.62 ?G, \DAY
     Route: 037
     Dates: start: 20151119, end: 20151207
  3. COMPOUNDED BACLOFEN [Suspect]
     Active Substance: BACLOFEN
     Dosage: 119.92 ?G, \DAY
     Route: 037
     Dates: start: 20151207
  4. CLONIDINE. [Suspect]
     Active Substance: CLONIDINE
     Dosage: 137.01 ?G, \DAY
     Route: 037
     Dates: start: 20151207
  5. DILAUDID [Suspect]
     Active Substance: HYDROMORPHONE HYDROCHLORIDE
     Dosage: 1.8268 MG, \DAY
     Route: 037
     Dates: start: 20151207
  6. BUPIVACAINE. [Suspect]
     Active Substance: BUPIVACAINE
     Dosage: 19.523 MG, \DAY
     Route: 037
     Dates: start: 20151119, end: 20151207
  7. COMPOUNDED BACLOFEN [Suspect]
     Active Substance: BACLOFEN
     Dosage: 121.05 ?G, \DAY
     Route: 037
     Dates: start: 20151119, end: 20151207
  8. COMPOUNDED BACLOFEN [Suspect]
     Active Substance: BACLOFEN
     Dosage: 137.01 ?G,\DAY
     Route: 037
     Dates: start: 20151207
  9. DILAUDID [Suspect]
     Active Substance: HYDROMORPHONE HYDROCHLORIDE
     Dosage: 1.614 MG, \DAY
     Dates: start: 20151119, end: 20151207
  10. CLONIDINE. [Suspect]
     Active Substance: CLONIDINE
     Dosage: 121.05 ?G, \DAY
     Route: 037
     Dates: start: 20151119, end: 20151207
  11. CLONIDINE. [Suspect]
     Active Substance: CLONIDINE
     Dosage: 119.92 ?G, \DAY
     Route: 037
     Dates: start: 20151207, end: 20160108
  12. DILAUDID [Suspect]
     Active Substance: HYDROMORPHONE HYDROCHLORIDE
     Dosage: 1.301 MG, \DAY
     Dates: start: 20151119, end: 20151207
  13. DILAUDID [Suspect]
     Active Substance: HYDROMORPHONE HYDROCHLORIDE
     Dosage: 1.599 MG, \DAY
     Route: 037
     Dates: start: 20151207
  14. COMPOUNDED BACLOFEN [Suspect]
     Active Substance: BACLOFEN
     Dosage: 97.62 ?G, \DAY
     Route: 037
     Dates: start: 20151119, end: 20151207
  15. BUPIVACAINE. [Suspect]
     Active Substance: BUPIVACAINE
     Dosage: 24.210 MG, \DAY
     Route: 037
     Dates: start: 20151119, end: 20151207
  16. BUPIVACAINE. [Suspect]
     Active Substance: BUPIVACAINE
     Dosage: 23.984 MG, \DAY
     Dates: start: 20151207

REACTIONS (2)
  - Dizziness [Recovered/Resolved]
  - Hypoaesthesia [Recovered/Resolved]

NARRATIVE: CASE EVENT DATE: 20160107
